FAERS Safety Report 4374054-5 (Version None)
Quarter: 2004Q2

REPORT INFORMATION
  Report Type: 
  Country: None (occurrence: None)
  Receive Date: 20040603
  Receipt Date: 20040513
  Transmission Date: 20050107
  Serious: Yes (Hospitalization, Disabling)
  Sender: FDA-Public Use
  Company Number: EWC040438828

PATIENT
  Age: 24 Year
  Sex: Female

DRUGS (2)
  1. ZYPREXA [Suspect]
     Indication: SCHIZOPHRENIA
     Dosage: 15 MG/1 DAY
     Dates: start: 19990101, end: 20040401
  2. METHADONE HCL [Concomitant]

REACTIONS (7)
  - CEREBRAL ISCHAEMIA [None]
  - COMA [None]
  - EXTRAPYRAMIDAL DISORDER [None]
  - HEART RATE DECREASED [None]
  - MULTIPLE DRUG OVERDOSE INTENTIONAL [None]
  - PARKINSON'S DISEASE [None]
  - SUICIDE ATTEMPT [None]
